FAERS Safety Report 5159451-2 (Version None)
Quarter: 2006Q4

REPORT INFORMATION
  Report Type: 
  Country: None (occurrence: None)
  Receive Date: 20061122
  Receipt Date: 20061122
  Transmission Date: 20070319
  Serious: No
  Sender: FDA-Public Use
  Company Number: None

PATIENT
  Age: 78 Year
  Sex: Female
  Weight: 65.7716 kg

DRUGS (7)
  1. LEVOFLOXACIN [Suspect]
     Indication: DRUG THERAPY
     Dosage: PO DOSE UNKNOWN
     Route: 048
     Dates: start: 20061017, end: 20061021
  2. ATORVASTATIN CALCIUM [Concomitant]
  3. NEXIUM [Concomitant]
  4. FLUTICASONE PROPIONATE [Concomitant]
  5. HCTZ/TRIAM [Concomitant]
  6. PREDNISONE TAB [Concomitant]
  7. APAP TAB [Concomitant]

REACTIONS (3)
  - ABASIA [None]
  - PAIN IN EXTREMITY [None]
  - TENDON RUPTURE [None]
